FAERS Safety Report 6816541-3 (Version None)
Quarter: 2010Q3

REPORT INFORMATION
  Report Type: 
  Country: None (occurrence: None)
  Receive Date: 20100706
  Receipt Date: 20100623
  Transmission Date: 20110219
  Serious: Yes (Other)
  Sender: FDA-Public Use
  Company Number: PHHY2010BR41270

PATIENT
  Sex: Male

DRUGS (2)
  1. DIOVAN HCT [Suspect]
  2. SUSTRATE [Concomitant]

REACTIONS (3)
  - CARDIAC OPERATION [None]
  - CATHETERISATION CARDIAC [None]
  - VASCULAR GRAFT [None]
